FAERS Safety Report 7739337-7 (Version None)
Quarter: 2011Q3

REPORT INFORMATION
  Report Type: 
  Country: None (occurrence: None)
  Receive Date: 20110909
  Receipt Date: 20110830
  Transmission Date: 20111222
  Serious: Yes (Hospitalization)
  Sender: FDA-Public Use
  Company Number: BR-US-EMD SERONO, INC.-7078404

PATIENT
  Sex: Female

DRUGS (5)
  1. CLONAZEPAM [Concomitant]
  2. REBIF [Suspect]
  3. ENALAPRIL MALEATE [Concomitant]
  4. REBIF [Suspect]
     Dates: start: 20110101
  5. REBIF [Suspect]
     Indication: RELAPSING-REMITTING MULTIPLE SCLEROSIS
     Dates: start: 20090701

REACTIONS (5)
  - PARAESTHESIA [None]
  - VERTIGO [None]
  - BALANCE DISORDER [None]
  - QUADRIPLEGIA [None]
  - INAPPROPRIATE SCHEDULE OF DRUG ADMINISTRATION [None]
